FAERS Safety Report 25534653 (Version 1)
Quarter: 2025Q3

REPORT INFORMATION
  Report Type: Spontaneous
  Country: EU (occurrence: EU)
  Receive Date: 20250709
  Receipt Date: 20250709
  Transmission Date: 20251021
  Serious: Yes (Other)
  Sender: BRISTOL-MYERS SQUIBB COMPANY
  Company Number: None

PATIENT
  Age: 78 Year
  Sex: Female
  Weight: 56.8 kg

DRUGS (8)
  1. ELIQUIS [Suspect]
     Active Substance: APIXABAN
     Indication: Anticoagulant therapy
     Dosage: 2/DAY OR 5 MG DAILY DOSE
     Route: 048
     Dates: end: 20250416
  2. ACETAMINOPHEN [Suspect]
     Active Substance: ACETAMINOPHEN
     Indication: Pain
     Dosage: 2/DAY
     Route: 048
     Dates: start: 20250306
  3. AMITRIPTYLINE HYDROCHLORIDE [Suspect]
     Active Substance: AMITRIPTYLINE HYDROCHLORIDE
     Indication: Depression
     Dosage: DAILY DOSE / 20 MG 1/DAY
     Route: 048
     Dates: start: 20250314
  4. SERTRALINE HYDROCHLORIDE [Suspect]
     Active Substance: SERTRALINE HYDROCHLORIDE
     Indication: Depression
     Dosage: X2/D OR 100 MG DAILY
     Route: 048
     Dates: start: 20250120
  5. ZOPICLONE [Suspect]
     Active Substance: ZOPICLONE
     Indication: Insomnia
     Dosage: 1/D DAILY DOSE 3.75 MG?SCORED FILM-COATED TABLET
     Route: 048
     Dates: start: 20250303, end: 20250425
  6. CIMZIA [Suspect]
     Active Substance: CERTOLIZUMAB PEGOL
     Indication: Rheumatoid arthritis
     Dosage: 1 PER 2 WEEKS
     Route: 058
     Dates: start: 20250211
  7. LANSOPRAZOLE [Concomitant]
     Active Substance: LANSOPRAZOLE
     Indication: Haemoptysis
     Dosage: 1/DAY?ENTERIC CAPSULE
     Route: 048
     Dates: start: 20250325
  8. POSACONAZOLE [Concomitant]
     Active Substance: POSACONAZOLE
     Indication: Bronchopulmonary aspergillosis
     Dosage: 1/DAY
     Dates: start: 20250331

REACTIONS (2)
  - Blood alkaline phosphatase increased [Not Recovered/Not Resolved]
  - Hepatic cytolysis [Recovering/Resolving]

NARRATIVE: CASE EVENT DATE: 20250326
